FAERS Safety Report 8324903-0 (Version None)
Quarter: 2012Q2

REPORT INFORMATION
  Report Type: 
  Country: None (occurrence: None)
  Receive Date: 20120501
  Receipt Date: 20120427
  Transmission Date: 20120825
  Serious: Yes (Other)
  Sender: FDA-Public Use
  Company Number: VE-PFIZER INC-2012096347

PATIENT
  Age: 77 Year
  Sex: Female

DRUGS (2)
  1. ZOLOFT [Suspect]
     Indication: SOMNOLENCE
     Dosage: 50 MG, UNK
     Route: 048
     Dates: start: 20120401
  2. LIPITOR [Concomitant]
     Dosage: 40 MG, UNK

REACTIONS (1)
  - CATARACT [None]
